FAERS Safety Report 11824371 (Version 1)
Quarter: 2015Q4

REPORT INFORMATION
  Report Type: Report from Study
  Country: US (occurrence: US)
  Receive Date: 20151210
  Receipt Date: 20151210
  Transmission Date: 20160305
  Serious: Yes (Other)
  Sender: FDA-Public Use
  Company Number: US-MUNDIPHARMA DS AND PHARMACOVIGILANCE-USA-2015-0120125

PATIENT
  Age: 57 Year
  Sex: Male

DRUGS (5)
  1. OXYCONTIN [Suspect]
     Active Substance: OXYCODONE HYDROCHLORIDE
     Indication: INTERVERTEBRAL DISC DISORDER
     Dosage: 2X 80 MG, BID
     Route: 048
     Dates: start: 20151104
  2. OXYCONTIN [Suspect]
     Active Substance: OXYCODONE HYDROCHLORIDE
     Dosage: 320 MG, Q12H
     Route: 048
     Dates: start: 20141110
  3. OXYCONTIN [Suspect]
     Active Substance: OXYCODONE HYDROCHLORIDE
     Indication: INTESTINAL OPERATION
     Dosage: 2X 40 MG, Q12H
     Route: 048
     Dates: start: 20151104
  4. OXYCONTIN [Suspect]
     Active Substance: OXYCODONE HYDROCHLORIDE
     Dosage: 120 MG, Q12H
     Route: 048
     Dates: start: 20141110
  5. OXYCONTIN [Suspect]
     Active Substance: OXYCODONE HYDROCHLORIDE
     Dosage: UNK
     Route: 048
     Dates: start: 2007

REACTIONS (8)
  - Depression [Unknown]
  - Influenza like illness [Unknown]
  - Abdominal pain upper [Unknown]
  - Tremor [Unknown]
  - Intentional product use issue [Unknown]
  - Disturbance in attention [Unknown]
  - Pyrexia [Unknown]
  - Visual acuity reduced [Unknown]

NARRATIVE: CASE EVENT DATE: 201412
